FAERS Safety Report 9562686 (Version 4)
Quarter: 2014Q1

REPORT INFORMATION
  Report Type: Spontaneous
  Country: US (occurrence: US)
  Receive Date: 20130927
  Receipt Date: 20140224
  Transmission Date: 20141002
  Serious: No
  Sender: FDA-Public Use
  Company Number: US-PFIZER INC-2013277104

PATIENT
  Age: 73 Year
  Sex: Female

DRUGS (3)
  1. XELJANZ [Suspect]
     Indication: RHEUMATOID ARTHRITIS
     Dosage: 5 MG, 2X/DAY
     Route: 048
     Dates: start: 20130914, end: 201309
  2. XELJANZ [Suspect]
     Indication: PAIN
     Dosage: UNK
     Route: 048
     Dates: start: 201309, end: 201309
  3. XELJANZ [Suspect]
     Dosage: 5 MG, BID
     Route: 048
     Dates: start: 201309, end: 201401

REACTIONS (5)
  - Pruritus [Unknown]
  - Rash [Unknown]
  - Skin disorder [Unknown]
  - Lacrimation increased [Unknown]
  - Drug ineffective [Unknown]
